FAERS Safety Report 5992866-9 (Version None)
Quarter: 2008Q4

REPORT INFORMATION
  Report Type: 
  Country: None (occurrence: None)
  Receive Date: 20081212
  Receipt Date: 20081208
  Transmission Date: 20090506
  Serious: Yes (Other)
  Sender: FDA-Public Use
  Company Number: BR-ASTRAZENECA-2008UW27319

PATIENT
  Sex: Female

DRUGS (4)
  1. SYMBICORT [Suspect]
     Indication: EMPHYSEMA
     Dosage: 320/9 UG BID
     Route: 055
     Dates: start: 20070101
  2. LOSARTAN POTASSIUM [Concomitant]
     Indication: HYPERTENSION
     Dosage: 50 MG
  3. ROXFLAN [Concomitant]
     Indication: HYPERTENSION
     Dosage: 5 MG
  4. LOSARCOL [Concomitant]
     Indication: HYPERTENSION

REACTIONS (6)
  - BLOOD PRESSURE INCREASED [None]
  - COUGH [None]
  - HEARING IMPAIRED [None]
  - INFLUENZA [None]
  - OPEN WOUND [None]
  - PYREXIA [None]
